FAERS Safety Report 6698566-4 (Version None)
Quarter: 2010Q2

REPORT INFORMATION
  Report Type: 
  Country: None (occurrence: None)
  Receive Date: 20100426
  Receipt Date: 20100426
  Transmission Date: 20101027
  Serious: Yes (Hospitalization)
  Sender: FDA-Public Use
  Company Number: None

PATIENT
  Age: 79 Year
  Sex: Female
  Weight: 65.7 kg

DRUGS (2)
  1. ZOCOR [Suspect]
     Dosage: 10 MG QHS PO
     Route: 048
     Dates: start: 20070420, end: 20100420
  2. ZETIA [Concomitant]

REACTIONS (1)
  - RHABDOMYOLYSIS [None]
